FAERS Safety Report 12437754 (Version 1)
Quarter: 2016Q2

REPORT INFORMATION
  Report Type: Spontaneous
  Country: US (occurrence: None)
  Receive Date: 20160603
  Receipt Date: 20160603
  Transmission Date: 20160815
  Serious: Yes (Hospitalization)
  Sender: FDA-Public Use
  Company Number: None

PATIENT
  Age: 67 Year
  Sex: Male
  Weight: 90.9 kg

DRUGS (2)
  1. CITALOPRAM [Suspect]
     Active Substance: CITALOPRAM HYDROBROMIDE
     Indication: DEPRESSION
     Route: 048
     Dates: start: 20151027, end: 20151114
  2. QUETIAPINE. [Suspect]
     Active Substance: QUETIAPINE
     Indication: VASCULAR DEMENTIA
     Route: 048
     Dates: start: 20151023, end: 20151114

REACTIONS (3)
  - Mental status changes [None]
  - Incontinence [None]
  - Asthenia [None]

NARRATIVE: CASE EVENT DATE: 20151114
